FAERS Safety Report 15383109 (Version 1)
Quarter: 2018Q3

REPORT INFORMATION
  Report Type: Spontaneous
  Country: US (occurrence: US)
  Receive Date: 20180913
  Receipt Date: 20180913
  Transmission Date: 20181010
  Serious: No
  Sender: FDA-Public Use
  Company Number: US-ASTELLAS-2017US040365

PATIENT
  Sex: Male

DRUGS (1)
  1. XTANDI [Suspect]
     Active Substance: ENZALUTAMIDE
     Indication: HORMONE-REFRACTORY PROSTATE CANCER
     Route: 048
     Dates: start: 20171006

REACTIONS (13)
  - Vomiting [Unknown]
  - Diarrhoea [Unknown]
  - Back pain [Unknown]
  - Cough [Unknown]
  - Treatment noncompliance [Unknown]
  - Dyspnoea [Unknown]
  - Somnolence [Unknown]
  - Constipation [Unknown]
  - Dizziness [Unknown]
  - Anxiety [Unknown]
  - Weight decreased [Unknown]
  - Flatulence [Unknown]
  - Pollakiuria [Unknown]
